FAERS Safety Report 7069419-7 (Version None)
Quarter: 2010Q4

REPORT INFORMATION
  Report Type: 
  Country: None (occurrence: None)
  Receive Date: 20101028
  Receipt Date: 20101026
  Transmission Date: 20110411
  Serious: Yes (Other)
  Sender: FDA-Public Use
  Company Number: GB-MERCK-1010GBR00102

PATIENT

DRUGS (1)
  1. SINEMET [Suspect]
     Indication: RESTLESS LEGS SYNDROME
     Route: 048

REACTIONS (2)
  - MALIGNANT MELANOMA STAGE I [None]
  - OFF LABEL USE [None]
